FAERS Safety Report 9650733 (Version 1)
Quarter: 2013Q4

REPORT INFORMATION
  Report Type: Spontaneous
  Country: DE (occurrence: DE)
  Receive Date: 20131029
  Receipt Date: 20131029
  Transmission Date: 20140711
  Serious: Yes (Other)
  Sender: FDA-Public Use
  Company Number: DE-ASTRAZENECA-2013SE77402

PATIENT
  Sex: Male

DRUGS (1)
  1. BELOC ZOK [Suspect]
     Indication: HYPERTONIA
     Route: 048
     Dates: start: 20131018

REACTIONS (2)
  - Blood pressure increased [Unknown]
  - Drug ineffective [Unknown]
